FAERS Safety Report 4851512-8 (Version None)
Quarter: 2005Q4

REPORT INFORMATION
  Report Type: 
  Country: None (occurrence: None)
  Receive Date: 20051212
  Receipt Date: 20040630
  Transmission Date: 20060501
  Serious: Yes (Life-Threatening)
  Sender: FDA-Public Use
  Company Number: JP-ROCHE-373067

PATIENT
  Age: 75 Year
  Sex: Female

DRUGS (4)
  1. ROCEPHIN [Suspect]
     Indication: DRUG USE FOR UNKNOWN INDICATION
     Dosage: ROUTE REPORTED AS INTRAVENOUS (NOT OTHERWISE SPECIFIED)
     Route: 042
     Dates: start: 20030519, end: 20030522
  2. MEIACT [Concomitant]
     Dosage: FORM: ORAL FORMULATION (NOT OTHERWISE SPECIFIED)
     Route: 048
     Dates: start: 20030501
  3. CLARITHROMYCIN [Concomitant]
     Route: 048
     Dates: start: 20030506
  4. GATIFLO [Concomitant]
     Route: 048
     Dates: start: 20030509

REACTIONS (6)
  - ACUTE RESPIRATORY DISTRESS SYNDROME [None]
  - DEPRESSED LEVEL OF CONSCIOUSNESS [None]
  - INTERSTITIAL LUNG DISEASE [None]
  - LACUNAR INFARCTION [None]
  - LYMPHOCYTE STIMULATION TEST POSITIVE [None]
  - UNRESPONSIVE TO VERBAL STIMULI [None]
